FAERS Safety Report 14191509 (Version 1)
Quarter: 2017Q4

REPORT INFORMATION
  Report Type: Spontaneous
  Country: IT (occurrence: IT)
  Receive Date: 20171115
  Receipt Date: 20171115
  Transmission Date: 20180321
  Serious: Yes (Other)
  Sender: FDA-Public Use
  Company Number: IT-JNJFOC-20171112957

PATIENT

DRUGS (1)
  1. HUMAN THROMBIN [Suspect]
     Active Substance: THROMBIN HUMAN
     Indication: HAEMOSTASIS
     Route: 061

REACTIONS (5)
  - Infection [Unknown]
  - Deep vein thrombosis [Unknown]
  - Intracranial haematoma [Unknown]
  - Pulmonary embolism [Unknown]
  - Brain oedema [Unknown]
